FAERS Safety Report 26155880 (Version 1)
Quarter: 2025Q4

REPORT INFORMATION
  Report Type: Spontaneous
  Country: EU (occurrence: EU)
  Receive Date: 20251215
  Receipt Date: 20251215
  Transmission Date: 20260118
  Serious: Yes (Other)
  Sender: ACCORD
  Company Number: None

PATIENT
  Age: 57 Year
  Sex: Female
  Weight: 72 kg

DRUGS (2)
  1. CARBOPLATIN [Suspect]
     Active Substance: CARBOPLATIN
     Indication: Lung neoplasm malignant
     Dosage: 1. 450 MG; 2. 150 MG, P2203795 EXP: 31-MAY-2024, 2. P2106775 EXP: 30-SEP-2023
     Dates: start: 20221104, end: 20221104
  2. PEMETREXED [Suspect]
     Active Substance: PEMETREXED
     Indication: Lung neoplasm malignant
     Dosage: 1. 500 MG, 2. 100 MG, P2203105 EXP: 30-NOV-2024 2. G2201122 EXP: 31-NOV-2023
     Dates: start: 20221104, end: 20221104

REACTIONS (3)
  - Transaminases abnormal [Recovering/Resolving]
  - Anaemia [Recovering/Resolving]
  - Thrombocytopenia [Recovering/Resolving]

NARRATIVE: CASE EVENT DATE: 20221125
